FAERS Safety Report 5530667-6 (Version None)
Quarter: 2007Q4

REPORT INFORMATION
  Report Type: 
  Country: None (occurrence: None)
  Receive Date: 20071130
  Receipt Date: 20071120
  Transmission Date: 20080405
  Serious: Yes (Hospitalization)
  Sender: FDA-Public Use
  Company Number: NL-ROCHE-528433

PATIENT
  Age: 64 Year
  Sex: Male

DRUGS (4)
  1. XELODA [Suspect]
     Route: 048
     Dates: start: 20061117
  2. XELODA [Suspect]
     Route: 048
     Dates: start: 20060201
  3. ELOXATIN [Suspect]
     Route: 065
     Dates: start: 20061117
  4. ELOXATIN [Suspect]
     Route: 065
     Dates: start: 20060201

REACTIONS (3)
  - ANAEMIA HAEMOLYTIC AUTOIMMUNE [None]
  - ANGINA PECTORIS [None]
  - RENAL FAILURE [None]
